FAERS Safety Report 13714026 (Version 1)
Quarter: 2017Q3

REPORT INFORMATION
  Report Type: Spontaneous
  Country: US (occurrence: US)
  Receive Date: 20170704
  Receipt Date: 20170704
  Transmission Date: 20171127
  Serious: No
  Sender: FDA-Public Use
  Company Number: US-ASTRAZENECA-2017SE65470

PATIENT
  Sex: Female

DRUGS (1)
  1. SYMBICORT [Suspect]
     Active Substance: BUDESONIDE\FORMOTEROL FUMARATE DIHYDRATE
     Route: 055
     Dates: start: 201701

REACTIONS (6)
  - Weight increased [Unknown]
  - Oropharyngeal pain [Unknown]
  - Increased appetite [Unknown]
  - Dyspnoea [Unknown]
  - Vocal cord disorder [Unknown]
  - Anxiety [Unknown]
